FAERS Safety Report 8065744-1 (Version None)
Quarter: 2012Q1

REPORT INFORMATION
  Report Type: 
  Country: None (occurrence: None)
  Receive Date: 20120124
  Receipt Date: 20120118
  Transmission Date: 20120608
  Serious: Yes (Hospitalization, Other)
  Sender: FDA-Public Use
  Company Number: US-PFIZER INC-2012015036

PATIENT
  Sex: Male
  Weight: 90.703 kg

DRUGS (9)
  1. XANAX [Suspect]
     Dosage: UNK
  2. AZOR [Concomitant]
     Indication: HYPERTENSION
     Dosage: 10/40 MG, DAILY
  3. CYANOCOBALAMIN/FOLIC ACID/PYRIDOXINE [Concomitant]
     Indication: VITAMIN SUPPLEMENTATION
     Dosage: UNK
  4. LEXAPRO [Concomitant]
     Indication: DEPRESSION
     Dosage: UNK
  5. ACETYLSALICYLIC ACID [Concomitant]
     Indication: PROPHYLAXIS
     Dosage: 81MG, UNK
  6. LYRICA [Suspect]
     Indication: PAIN
     Dosage: 75 MG, 2X/DAY
     Route: 048
     Dates: start: 20040101
  7. XANAX [Suspect]
     Indication: ANXIETY
     Dosage: 1 MG, 2X/DAY
     Route: 048
     Dates: start: 20040101
  8. XANAX [Suspect]
     Dosage: 1 MG, 3X/DAY
     Route: 048
  9. OXYCODONE [Concomitant]
     Indication: PAIN
     Dosage: 325 MG, 2X/DAY

REACTIONS (3)
  - LOSS OF CONSCIOUSNESS [None]
  - DRUG ABUSE [None]
  - AMNESIA [None]
